FAERS Safety Report 18208274 (Version 2)
Quarter: 2021Q2

REPORT INFORMATION
  Report Type: Spontaneous
  Country: KW (occurrence: KW)
  Receive Date: 20200828
  Receipt Date: 20210503
  Transmission Date: 20210717
  Serious: Yes (Other)
  Sender: FDA-Public Use
  Company Number: KW-LUPIN PHARMACEUTICALS INC.-2020-05131

PATIENT
  Age: 15 Year
  Sex: Male

DRUGS (4)
  1. METHYLPHENIDATE. [Suspect]
     Active Substance: METHYLPHENIDATE
     Indication: ANXIETY
     Dosage: 54 MILLIGRAM (AS MORNING DOSE OF 36 MG AND NOONTIME DOSE OF 18 MG)
     Route: 048
  2. METHYLPHENIDATE. [Suspect]
     Active Substance: METHYLPHENIDATE
     Indication: ATTENTION DEFICIT HYPERACTIVITY DISORDER
     Dosage: 45 MILLIGRAM (3 DIVIDED DOSES OVER 2 WEEKS)
     Route: 065
  3. METHYLPHENIDATE. [Suspect]
     Active Substance: METHYLPHENIDATE
     Indication: ENURESIS
     Dosage: 72 MILLIGRAM
     Route: 048
  4. CLONIDINE. [Suspect]
     Active Substance: CLONIDINE
     Indication: PRODUCT USED FOR UNKNOWN INDICATION
     Dosage: 150 MICROGRAM, QD
     Route: 065

REACTIONS (6)
  - Hypotension [Unknown]
  - Anxiety [Recovering/Resolving]
  - Bradycardia [Unknown]
  - Presyncope [Unknown]
  - Dysphoria [Unknown]
  - Drug intolerance [Unknown]
